FAERS Safety Report 10019297 (Version 2)
Quarter: 2014Q1

REPORT INFORMATION
  Report Type: Spontaneous
  Country: US (occurrence: US)
  Receive Date: 20140318
  Receipt Date: 20140318
  Transmission Date: 20141002
  Serious: Yes (Other)
  Sender: FDA-Public Use
  Company Number: US-GE HEALTHCARE MEDICAL DIAGNOSTICS-OSCN-PR-0903S-0133

PATIENT
  Sex: Male

DRUGS (27)
  1. OMNISCAN [Suspect]
  2. GADOLINIUM (UNSPECIFIED) [Suspect]
     Indication: PRODUCT USED FOR UNKNOWN INDICATION
     Route: 042
     Dates: start: 20020519, end: 20020519
  3. GADOLINIUM (UNSPECIFIED) [Suspect]
     Route: 042
     Dates: start: 20020426, end: 20020426
  4. GADOLINIUM (UNSPECIFIED) [Suspect]
     Route: 042
     Dates: start: 20021026, end: 20021026
  5. GADOLINIUM (UNSPECIFIED) [Suspect]
     Route: 042
     Dates: start: 20011227, end: 20011227
  6. GADOLINIUM (UNSPECIFIED) [Suspect]
     Route: 042
     Dates: start: 20021111, end: 20021111
  7. GADOLINIUM (UNSPECIFIED) [Suspect]
     Route: 042
     Dates: start: 20030827, end: 20030827
  8. GADOLINIUM (UNSPECIFIED) [Suspect]
     Route: 042
     Dates: start: 20030828, end: 20030828
  9. GADOLINIUM (UNSPECIFIED) [Suspect]
     Route: 042
     Dates: start: 20030918, end: 20030918
  10. GADOLINIUM (UNSPECIFIED) [Suspect]
     Route: 042
     Dates: start: 20050801, end: 20050801
  11. GADOLINIUM (UNSPECIFIED) [Suspect]
     Route: 042
     Dates: start: 20060427, end: 20060427
  12. MAGNEVIST [Suspect]
     Indication: PRODUCT USED FOR UNKNOWN INDICATION
     Route: 042
     Dates: start: 20000426, end: 20000426
  13. MAGNEVIST [Suspect]
     Dates: start: 20001026, end: 20001026
  14. MAGNEVIST [Suspect]
     Dates: start: 20011227, end: 20011227
  15. MAGNEVIST [Suspect]
     Dates: start: 20020505, end: 20020505
  16. MAGNEVIST [Suspect]
     Dates: start: 20021111, end: 20021111
  17. MAGNEVIST [Suspect]
     Dates: start: 20030827, end: 20030827
  18. MAGNEVIST [Suspect]
     Dates: start: 20030828, end: 20030828
  19. MAGNEVIST [Suspect]
     Dates: start: 20030917, end: 20030917
  20. MAGNEVIST [Suspect]
     Dates: start: 20030918, end: 20030918
  21. MAGNEVIST [Suspect]
     Dates: start: 20050801, end: 20050801
  22. MAGNEVIST [Suspect]
     Dates: start: 20060427, end: 20060427
  23. MAGNEVIST [Suspect]
     Dates: start: 20060608, end: 20060608
  24. OPTIMARK [Suspect]
     Indication: PRODUCT USED FOR UNKNOWN INDICATION
     Route: 042
  25. MULTIHANCE [Suspect]
     Indication: PRODUCT USED FOR UNKNOWN INDICATION
     Route: 042
  26. PROHANCE [Suspect]
     Indication: PRODUCT USED FOR UNKNOWN INDICATION
     Route: 042
  27. ULTRAVIST [Suspect]
     Route: 042
     Dates: start: 20070309, end: 20070309

REACTIONS (1)
  - Nephrogenic systemic fibrosis [Not Recovered/Not Resolved]
